FAERS Safety Report 19905834 (Version 1)
Quarter: 2021Q3

REPORT INFORMATION
  Report Type: Spontaneous
  Country: US (occurrence: US)
  Receive Date: 20210930
  Receipt Date: 20210930
  Transmission Date: 20211014
  Serious: No
  Sender: FDA-Public Use
  Company Number: None

PATIENT
  Age: 38 Year
  Sex: Female
  Weight: 118.81 kg

DRUGS (1)
  1. DULOXETINE 30MG [Suspect]
     Active Substance: DULOXETINE
     Indication: ADJUSTMENT DISORDER WITH MIXED ANXIETY AND DEPRESSED MOOD
     Dates: start: 20210127

REACTIONS (4)
  - Anxiety [None]
  - Product substitution issue [None]
  - Treatment failure [None]
  - Rash [None]
